FAERS Safety Report 9702316 (Version 3)
Quarter: 2019Q3

REPORT INFORMATION
  Report Type: Report from Study
  Country: US (occurrence: US)
  Receive Date: 20131121
  Receipt Date: 20190916
  Transmission Date: 20191005
  Serious: Yes (Other)
  Sender: FDA-Public Use
  Company Number: US-CELGENEUS-163-21880-13113269

PATIENT

DRUGS (6)
  1. REVLIMID [Suspect]
     Active Substance: LENALIDOMIDE
     Indication: PLASMA CELL MYELOMA
     Dosage: 15-25 MG
     Route: 048
  2. ACY-1215 [Suspect]
     Active Substance: RICOLINOSTAT
     Dosage: 320 MILLIGRAM
     Route: 048
  3. ACY-1215 [Suspect]
     Active Substance: RICOLINOSTAT
     Indication: PLASMA CELL MYELOMA
     Dosage: 40-240 MG
     Route: 048
  4. ACY-1215 [Suspect]
     Active Substance: RICOLINOSTAT
     Route: 048
  5. DEXAMETHASONE. [Suspect]
     Active Substance: DEXAMETHASONE
     Indication: PLASMA CELL MYELOMA
     Dosage: 40 MILLIGRAM
     Route: 048
  6. ACY-1215 [Suspect]
     Active Substance: RICOLINOSTAT
     Dosage: 240 MILLIGRAM
     Route: 048

REACTIONS (23)
  - Hypertension [Unknown]
  - Alanine aminotransferase increased [Unknown]
  - Hyponatraemia [Unknown]
  - Dyspepsia [Unknown]
  - Diarrhoea [Unknown]
  - Cough [Unknown]
  - Blood creatinine increased [Unknown]
  - Hypokalaemia [Unknown]
  - Aspartate aminotransferase increased [Unknown]
  - Syncope [Unknown]
  - Deep vein thrombosis [Unknown]
  - Leukopenia [Unknown]
  - Laboratory test abnormal [Unknown]
  - Dysgeusia [Unknown]
  - Hypercalcaemia [Unknown]
  - Hyperbilirubinaemia [Unknown]
  - Vomiting [Unknown]
  - Hypophosphataemia [Unknown]
  - Product dose omission [Unknown]
  - Pain in extremity [Unknown]
  - Dyspnoea [Unknown]
  - Nausea [Unknown]
  - Insomnia [Unknown]
